FAERS Safety Report 4287420-3 (Version None)
Quarter: 2004Q1

REPORT INFORMATION
  Report Type: 
  Country: None (occurrence: None)
  Receive Date: 20040205
  Receipt Date: 20040116
  Transmission Date: 20041129
  Serious: No
  Sender: FDA-Public Use
  Company Number: A01200305089

PATIENT
  Age: 83 Year
  Sex: Male

DRUGS (6)
  1. ARIXTRA [Suspect]
     Indication: EMBOLISM
  2. ARIXTRA [Suspect]
     Indication: KNEE ARTHROPLASTY
  3. ARIXTRA [Suspect]
     Indication: PROPHYLAXIS
  4. ANTIBIOTICS [Concomitant]
  5. ANALGESIC [Concomitant]
  6. LOFTON (BUFLOMEDIL HYDROCHLORIDE) [Concomitant]

REACTIONS (11)
  - CARDIO-RESPIRATORY ARREST [None]
  - COUGH [None]
  - GASTRITIS HAEMORRHAGIC [None]
  - GENERAL PHYSICAL HEALTH DETERIORATION [None]
  - ILIAC ARTERY THROMBOSIS [None]
  - PAIN [None]
  - PNEUMONIA [None]
  - POOR PERIPHERAL CIRCULATION [None]
  - POST PROCEDURAL HAEMATOMA [None]
  - PYREXIA [None]
  - RESPIRATORY TRACT INFECTION [None]
